FAERS Safety Report 7522697-X (Version None)
Quarter: 2011Q2

REPORT INFORMATION
  Report Type: 
  Country: None (occurrence: None)
  Receive Date: 20110603
  Receipt Date: 20110531
  Transmission Date: 20111010
  Serious: Yes (Hospitalization, Other)
  Sender: FDA-Public Use
  Company Number: US-PFIZER INC-2010005532

PATIENT
  Sex: Female

DRUGS (2)
  1. CHANTIX [Suspect]
     Indication: SMOKING CESSATION THERAPY
     Dosage: 0.5 MG, UNK
     Dates: start: 20071017, end: 20071001
  2. CHANTIX [Suspect]
     Dosage: 1 MG, UNK
     Dates: start: 20071001, end: 20071105

REACTIONS (4)
  - HEADACHE [None]
  - SUICIDE ATTEMPT [None]
  - VISION BLURRED [None]
  - DEPRESSION [None]
